FAERS Safety Report 6012555-4 (Version None)
Quarter: 2008Q4

REPORT INFORMATION
  Report Type: 
  Country: None (occurrence: None)
  Receive Date: 20081218
  Receipt Date: 20081208
  Transmission Date: 20090506
  Serious: Yes (Hospitalization, Other)
  Sender: FDA-Public Use
  Company Number: JP-WYE-H06461208

PATIENT
  Age: 67 Year
  Sex: Male

DRUGS (6)
  1. AMIODARONE HCL [Suspect]
     Indication: ATRIAL FIBRILLATION
     Route: 048
  2. AMIODARONE HCL [Suspect]
     Indication: VENTRICULAR TACHYCARDIA
  3. CARVEDILOL [Concomitant]
     Dosage: 10-20 MG/DAY
     Route: 065
  4. CANDESARTAN CILEXETIL [Concomitant]
     Dosage: 4-8 MG/DAY
     Route: 065
  5. DIGOXIN [Concomitant]
     Route: 065
  6. FUROSEMIDE [Concomitant]
     Route: 065

REACTIONS (2)
  - GLOMERULONEPHRITIS MEMBRANOUS [None]
  - PULMONARY MASS [None]
